FAERS Safety Report 7960358-3 (Version None)
Quarter: 2011Q4

REPORT INFORMATION
  Report Type: 
  Country: None (occurrence: None)
  Receive Date: 20111130
  Receipt Date: 20111122
  Transmission Date: 20120403
  Serious: Yes (Death, Hospitalization)
  Sender: FDA-Public Use
  Company Number: 2011AL000090

PATIENT
  Age: 55 Year
  Sex: Female
  Weight: 92.0802 kg

DRUGS (7)
  1. CYANOCOBALAMIN [Concomitant]
  2. ONDANSETRON [Concomitant]
  3. HEPARIN [Concomitant]
  4. FOLOTYN [Suspect]
     Indication: PERIPHERAL T-CELL LYMPHOMA UNSPECIFIED
     Dosage: 20 MG, IV
     Route: 042
     Dates: start: 20111108, end: 20111108
  5. FOLIC ACID [Concomitant]
  6. PROMETHAZINE [Concomitant]
  7. SODIUM CHLORIDE [Concomitant]

REACTIONS (2)
  - TOXIC EPIDERMAL NECROLYSIS [None]
  - GENERAL PHYSICAL HEALTH DETERIORATION [None]
